FAERS Safety Report 4958306-3 (Version None)
Quarter: 2006Q1

REPORT INFORMATION
  Report Type: 
  Country: None (occurrence: None)
  Receive Date: 20060329
  Receipt Date: 20060329
  Transmission Date: 20060701
  Serious: Yes (Hospitalization)
  Sender: FDA-Public Use
  Company Number: None

PATIENT
  Age: 14 Year
  Sex: Female
  Weight: 72.5 kg

DRUGS (3)
  1. REMICADE [Suspect]
     Indication: INFLAMMATORY BOWEL DISEASE
     Dosage: 5 MG/KG MONTHLY IV
     Route: 042
     Dates: start: 20040501, end: 20051007
  2. REMICADE [Suspect]
     Indication: PAIN
     Dosage: 5 MG/KG MONTHLY IV
     Route: 042
     Dates: start: 20040501, end: 20051007
  3. REMICADE [Suspect]
     Indication: SWELLING
     Dosage: 5 MG/KG MONTHLY IV
     Route: 042
     Dates: start: 20040501, end: 20051007

REACTIONS (1)
  - LUPUS-LIKE SYNDROME [None]
